FAERS Safety Report 16098050 (Version 3)
Quarter: 2019Q2

REPORT INFORMATION
  Report Type: Spontaneous
  Country: CA (occurrence: CA)
  Receive Date: 20190320
  Receipt Date: 20190522
  Transmission Date: 20190711
  Serious: Yes (Hospitalization, Other)
  Sender: FDA-Public Use
  Company Number: CA-PFIZER INC-2019116289

PATIENT
  Age: 77 Year
  Sex: Female
  Weight: 61.6 kg

DRUGS (3)
  1. FRAGMIN [Suspect]
     Active Substance: DALTEPARIN SODIUM
     Indication: PULMONARY EMBOLISM
     Dosage: 12500 IU, 1X/DAY
     Route: 058
     Dates: start: 201610, end: 201710
  2. FRAGMIN [Suspect]
     Active Substance: DALTEPARIN SODIUM
     Dosage: 12500 IU, UNK
     Route: 058
     Dates: start: 201806, end: 201902
  3. LORLATINIB [Concomitant]
     Active Substance: LORLATINIB
     Indication: LUNG NEOPLASM MALIGNANT
     Dosage: 150 MG
     Route: 048
     Dates: start: 201810, end: 201902

REACTIONS (1)
  - Gastrointestinal haemorrhage [Recovered/Resolved]

NARRATIVE: CASE EVENT DATE: 201902
